FAERS Safety Report 11244844 (Version 1)
Quarter: 2015Q3

REPORT INFORMATION
  Report Type: Spontaneous
  Country: US (occurrence: US)
  Receive Date: 20150707
  Receipt Date: 20150707
  Transmission Date: 20151125
  Serious: No
  Sender: FDA-Public Use
  Company Number: US-TARO-2015TAR00439

PATIENT
  Age: 78 Year
  Sex: Female
  Weight: 78.46 kg

DRUGS (5)
  1. ACETAZOLAMIDE TABLETS 125 MG [Suspect]
     Active Substance: ACETAZOLAMIDE
     Indication: INTRAOCULAR LENS IMPLANT
     Dosage: UNK
     Route: 048
     Dates: start: 20141218, end: 201501
  2. ACETAZOLAMIDE TABLETS 125 MG [Suspect]
     Active Substance: ACETAZOLAMIDE
     Dosage: UNK
     Route: 048
     Dates: start: 201502, end: 20150311
  3. SYNTHROID [Concomitant]
     Active Substance: LEVOTHYROXINE SODIUM
  4. VIGAMOX [Concomitant]
     Active Substance: MOXIFLOXACIN HYDROCHLORIDE
  5. DURASOL [Concomitant]

REACTIONS (6)
  - Abnormal faeces [Recovered/Resolved]
  - Scab [Recovered/Resolved]
  - Palpitations [Recovered/Resolved]
  - Skin turgor decreased [Not Recovered/Not Resolved]
  - Strabismus [Recovered/Resolved]
  - Skin discolouration [Not Recovered/Not Resolved]

NARRATIVE: CASE EVENT DATE: 2015
